FAERS Safety Report 5795179-3 (Version None)
Quarter: 2008Q2

REPORT INFORMATION
  Report Type: 
  Country: None (occurrence: None)
  Receive Date: 20080627
  Receipt Date: 20080627
  Transmission Date: 20081010
  Serious: Yes (Hospitalization)
  Sender: FDA-Public Use
  Company Number: None

PATIENT
  Sex: Female
  Weight: 74 kg

DRUGS (8)
  1. TEMOZOLOMIDE [Suspect]
     Dosage: 1450 MG
  2. ADVAIR DISKUS 100/50 [Concomitant]
  3. ALBUTEROL [Concomitant]
  4. FLORINEF [Concomitant]
  5. KEPPRA [Concomitant]
  6. LAMICTAL [Concomitant]
  7. MIRALAX [Concomitant]
  8. PREVACID [Concomitant]

REACTIONS (12)
  - BALANCE DISORDER [None]
  - BLOOD PRESSURE ORTHOSTATIC ABNORMAL [None]
  - CONSTIPATION [None]
  - DEHYDRATION [None]
  - DIZZINESS [None]
  - FATIGUE [None]
  - INCORRECT DOSE ADMINISTERED [None]
  - INFECTION [None]
  - OEDEMA PERIPHERAL [None]
  - PARTIAL SEIZURES [None]
  - TACHYCARDIA [None]
  - THERAPEUTIC AGENT TOXICITY [None]
